FAERS Safety Report 8984239 (Version 1)
Quarter: 2012Q4

REPORT INFORMATION
  Report Type: 
  Country: US (occurrence: US)
  Receive Date: 20121226
  Receipt Date: 20121226
  Transmission Date: 20130627
  Serious: Yes (Other)
  Sender: FDA-Public Use
  Company Number: US-JNJFOC-20121207078

PATIENT
  Age: 67 Year
  Sex: Male

DRUGS (6)
  1. REMICADE [Suspect]
     Indication: RHEUMATOID ARTHRITIS
     Route: 042
  2. REMICADE [Suspect]
     Indication: RHEUMATOID ARTHRITIS
     Route: 042
     Dates: start: 20120531
  3. TYLENOL [Suspect]
     Route: 048
  4. TYLENOL [Suspect]
     Indication: PREMEDICATION
     Route: 048
     Dates: start: 20120531
  5. SOLU-MEDROL [Suspect]
     Indication: PREMEDICATION
     Route: 065
     Dates: start: 20120531
  6. BENADRYL [Suspect]
     Indication: PREMEDICATION
     Route: 048
     Dates: start: 20120531

REACTIONS (4)
  - Hypotension [Recovered/Resolved]
  - Infusion related reaction [Unknown]
  - Dizziness [Recovered/Resolved]
  - Pruritus [Recovered/Resolved]
